FAERS Safety Report 5105622-0 (Version None)
Quarter: 2006Q3

REPORT INFORMATION
  Report Type: 
  Country: None (occurrence: None)
  Receive Date: 20060915
  Receipt Date: 20060905
  Transmission Date: 20061208
  Serious: Yes (Hospitalization)
  Sender: FDA-Public Use
  Company Number: JP-JNJFOC-20060801380

PATIENT
  Sex: Male
  Weight: 2.86 kg

DRUGS (3)
  1. RISPERDAL [Suspect]
     Indication: DRUG EXPOSURE DURING PREGNANCY
     Route: 015
  2. CLONAZEPAM [Concomitant]
     Indication: DRUG EXPOSURE DURING PREGNANCY
  3. KAYTWO [Concomitant]
     Route: 048

REACTIONS (3)
  - CONVULSION NEONATAL [None]
  - HYPOGLYCAEMIA NEONATAL [None]
  - HYPOXIA [None]
